FAERS Safety Report 19055477 (Version 1)
Quarter: 2021Q1

REPORT INFORMATION
  Report Type: Spontaneous
  Country: US (occurrence: US)
  Receive Date: 20210324
  Receipt Date: 20210324
  Transmission Date: 20210420
  Serious: Yes (Other)
  Sender: FDA-Public Use
  Company Number: US-B.I. PHARMACEUTICALS,INC./RIDGEFIELD-2021-BI-092225

PATIENT
  Age: 65 Year
  Sex: Female
  Weight: 74 kg

DRUGS (22)
  1. JANTOVEN [Suspect]
     Active Substance: WARFARIN SODIUM
     Indication: SYSTEMIC LUPUS ERYTHEMATOSUS
     Dosage: TITRATED BETWEEN 3 AND 5.5MG, 1X/DAY NIGHTLY
     Dates: end: 20210223
  2. KLOR?CON [Concomitant]
     Active Substance: POTASSIUM CHLORIDE
     Indication: PRODUCT USED FOR UNKNOWN INDICATION
     Dosage: 40?120 MEQ
  3. DEXAMETHASONE. [Concomitant]
     Active Substance: DEXAMETHASONE
     Indication: PRODUCT USED FOR UNKNOWN INDICATION
  4. JANTOVEN [Suspect]
     Active Substance: WARFARIN SODIUM
     Indication: RENAL FAILURE
  5. ALLOPURINOL. [Concomitant]
     Active Substance: ALLOPURINOL
     Dates: end: 202008
  6. VITAMIN D [COLECALCIFEROL] [Concomitant]
     Active Substance: CHOLECALCIFEROL
     Indication: PRODUCT USED FOR UNKNOWN INDICATION
  7. JANTOVEN [Suspect]
     Active Substance: WARFARIN SODIUM
     Indication: PROTEIN C DEFICIENCY
  8. COLCHICINE. [Concomitant]
     Active Substance: COLCHICINE
  9. JANTOVEN [Suspect]
     Active Substance: WARFARIN SODIUM
     Indication: ANTITHROMBIN III DEFICIENCY
  10. JANTOVEN [Suspect]
     Active Substance: WARFARIN SODIUM
     Indication: ANTIPHOSPHOLIPID ANTIBODIES
  11. CLARITHROMYCIN. [Suspect]
     Active Substance: CLARITHROMYCIN
     Indication: PRODUCT USED FOR UNKNOWN INDICATION
     Dates: start: 20210218, end: 202102
  12. EFFER K [Concomitant]
     Indication: PRODUCT USED FOR UNKNOWN INDICATION
     Dosage: 40?120 MEQ
  13. LANSOPRAZOLE. [Concomitant]
     Active Substance: LANSOPRAZOLE
     Indication: PRODUCT USED FOR UNKNOWN INDICATION
  14. TYLENOL WITH CODEINE [Concomitant]
     Active Substance: ACETAMINOPHEN\CODEINE PHOSPHATE
     Indication: PRODUCT USED FOR UNKNOWN INDICATION
     Dosage: 325/60 MG
  15. TRADJENTA [Suspect]
     Active Substance: LINAGLIPTIN
     Indication: PRODUCT USED FOR UNKNOWN INDICATION
  16. JANTOVEN [Suspect]
     Active Substance: WARFARIN SODIUM
     Indication: FACTOR IX DEFICIENCY
     Dosage: TITRATED BETWEEN 3 AND 5.5MG, 1X/DAY NIGHTLY
     Dates: end: 20210223
  17. TORSEMIDE. [Concomitant]
     Active Substance: TORSEMIDE
     Indication: PRODUCT USED FOR UNKNOWN INDICATION
  18. TRIAMTERENE AND HYDROCHLOROTHIAZIDE [Concomitant]
     Active Substance: HYDROCHLOROTHIAZIDE\TRIAMTERENE
     Indication: PRODUCT USED FOR UNKNOWN INDICATION
     Dosage: 37.5/25MG
  19. MAGNESIUM OXIDE. [Concomitant]
     Active Substance: MAGNESIUM OXIDE
     Indication: PRODUCT USED FOR UNKNOWN INDICATION
  20. TYLENOL EXTRA STRENGTH [Concomitant]
     Active Substance: ACETAMINOPHEN
     Indication: PRODUCT USED FOR UNKNOWN INDICATION
  21. ALLOPURINOL. [Suspect]
     Active Substance: ALLOPURINOL
     Indication: PRODUCT USED FOR UNKNOWN INDICATION
     Dates: start: 202008
  22. ZOMIG [Concomitant]
     Active Substance: ZOLMITRIPTAN
     Indication: PRODUCT USED FOR UNKNOWN INDICATION

REACTIONS (9)
  - Paraesthesia [Recovering/Resolving]
  - Pruritus [Not Recovered/Not Resolved]
  - Reaction to excipient [Unknown]
  - Dyspnoea [Recovering/Resolving]
  - Urticaria [Unknown]
  - Formication [Recovering/Resolving]
  - Unevaluable event [Not Recovered/Not Resolved]
  - Palpitations [Recovering/Resolving]
  - Abscess [Unknown]

NARRATIVE: CASE EVENT DATE: 202008
